FAERS Safety Report 8014486-7 (Version None)
Quarter: 2011Q4

REPORT INFORMATION
  Report Type: 
  Country: None (occurrence: None)
  Receive Date: 20111229
  Receipt Date: 20111219
  Transmission Date: 20120403
  Serious: Yes (Death)
  Sender: FDA-Public Use
  Company Number: US-PFIZER INC-2011310295

PATIENT
  Age: 44 Year
  Sex: Male

DRUGS (4)
  1. HYDROXYZINE [Suspect]
     Route: 048
  2. OXYCODONE HYDROCHLORIDE [Suspect]
     Route: 048
  3. MIRTAZAPINE [Suspect]
     Route: 048
  4. TRAZODONE HCL [Suspect]
     Route: 048

REACTIONS (3)
  - RESPIRATORY ARREST [None]
  - DRUG ABUSE [None]
  - CARDIAC ARREST [None]
